FAERS Safety Report 26126706 (Version 1)
Quarter: 2025Q4

REPORT INFORMATION
  Report Type: Spontaneous
  Country: CH (occurrence: CH)
  Receive Date: 20251205
  Receipt Date: 20251205
  Transmission Date: 20260117
  Serious: Yes (Hospitalization)
  Sender: NOVARTIS
  Company Number: None

PATIENT
  Age: 66 Year
  Sex: Male

DRUGS (8)
  1. CARBAMAZEPINE [Interacting]
     Active Substance: CARBAMAZEPINE
     Indication: Trigeminal neuropathy
     Dosage: 10 MG, Q12H
     Route: 048
     Dates: start: 20250611, end: 20250705
  2. TRILEPTAL [Interacting]
     Active Substance: OXCARBAZEPINE
     Indication: Trigeminal neuropathy
     Dosage: 300 MG, Q12H
     Route: 048
     Dates: start: 20250705
  3. HYDROCORTISONE [Interacting]
     Active Substance: HYDROCORTISONE
     Indication: Hypopituitarism
     Dosage: 20 MG, Q24H
     Route: 048
     Dates: start: 202503
  4. Duloxetin sandoz [Concomitant]
     Indication: Product used for unknown indication
     Dosage: UNK
     Route: 048
  5. PANTOPRAZOLE SODIUM [Concomitant]
     Active Substance: PANTOPRAZOLE SODIUM
     Indication: Product used for unknown indication
     Dosage: UNK
     Route: 048
  6. EUTHYROX [Concomitant]
     Active Substance: LEVOTHYROXINE SODIUM
     Indication: Product used for unknown indication
     Dosage: UNK
     Route: 048
  7. PREGABALIN [Concomitant]
     Active Substance: PREGABALIN
     Indication: Product used for unknown indication
     Dosage: UNK
     Route: 048
  8. MOVICOL [Concomitant]
     Active Substance: POLYETHYLENE GLYCOL 3350\POTASSIUM CHLORIDE\SODIUM BICARBONATE\SODIUM CHLORIDE
     Indication: Product used for unknown indication
     Dosage: UNK
     Route: 065

REACTIONS (2)
  - Adrenocortical insufficiency acute [Recovering/Resolving]
  - Drug interaction [Recovering/Resolving]

NARRATIVE: CASE EVENT DATE: 20250611
